FAERS Safety Report 25908812 (Version 1)
Quarter: 2025Q4

REPORT INFORMATION
  Report Type: Report from Study
  Country: US (occurrence: US)
  Receive Date: 20251011
  Receipt Date: 20251011
  Transmission Date: 20260119
  Serious: Yes (Hospitalization)
  Sender: ABBVIE
  Company Number: US-ABBVIE-6281735

PATIENT
  Age: 64 Year
  Sex: Male

DRUGS (1)
  1. VENCLEXTA [Suspect]
     Active Substance: VENETOCLAX
     Indication: Acute myeloid leukaemia
     Dosage: 14 DAYS ON, 14 DAYS OFF, 2 TABLETS EVERY 24 HOURS. TAKE ON DAYS 3-28 OF CHEMO CYCLE
     Route: 048
     Dates: start: 20250502

REACTIONS (3)
  - Staphylococcal infection [Not Recovered/Not Resolved]
  - Off label use [Unknown]
  - Unevaluable event [Unknown]

NARRATIVE: CASE EVENT DATE: 20250101
